FAERS Safety Report 6127139-7 (Version None)
Quarter: 2009Q1

REPORT INFORMATION
  Report Type: 
  Country: None (occurrence: None)
  Receive Date: 20090320
  Receipt Date: 20090211
  Transmission Date: 20090719
  Serious: No
  Sender: FDA-Public Use
  Company Number: US-ABBOTT-09P-163-0502953-00

PATIENT
  Sex: Male

DRUGS (1)
  1. E.E.S. FILMTABS [Suspect]
     Indication: INFECTION
     Dosage: UNKNOWN BECAUSE WAS SEVERAL YEARS AGO
     Dates: start: 19910101, end: 19910101

REACTIONS (1)
  - RASH [None]
